FAERS Safety Report 8959952 (Version 7)
Quarter: 2015Q3

REPORT INFORMATION
  Report Type: Spontaneous
  Country: US (occurrence: US)
  Receive Date: 20121212
  Receipt Date: 20150701
  Transmission Date: 20151125
  Serious: Yes (Hospitalization, Other)
  Sender: FDA-Public Use
  Company Number: US-ASTRAZENECA-2012SE92032

PATIENT
  Age: 515 Month
  Sex: Male

DRUGS (3)
  1. SEROQUEL [Suspect]
     Active Substance: QUETIAPINE FUMARATE
     Route: 048
     Dates: start: 200301, end: 20030618
  2. SEROQUEL [Suspect]
     Active Substance: QUETIAPINE FUMARATE
     Dosage: 200 MG IN THE MORNING AND 400 MG AT BED TIME
     Route: 048
     Dates: start: 200303
  3. NEURONTIN [Concomitant]
     Active Substance: GABAPENTIN
     Dates: start: 200303

REACTIONS (13)
  - Constipation [Unknown]
  - Diabetic coma [Unknown]
  - Pancreatic cyst [Unknown]
  - Blood glucose decreased [Unknown]
  - Polyuria [Unknown]
  - Weight increased [Unknown]
  - Diabetic ketoacidosis [Unknown]
  - Blood glucose fluctuation [Unknown]
  - Type 2 diabetes mellitus [Unknown]
  - Blood glucose increased [Unknown]
  - Choking sensation [Unknown]
  - Vision blurred [Unknown]
  - Seizure [Unknown]

NARRATIVE: CASE EVENT DATE: 200306
